FAERS Safety Report 6538448-1 (Version None)
Quarter: 2010Q1

REPORT INFORMATION
  Report Type: 
  Country: None (occurrence: None)
  Receive Date: 20100111
  Receipt Date: 20100104
  Transmission Date: 20100710
  Serious: Yes (Other)
  Sender: FDA-Public Use
  Company Number: 060001J10CAN

PATIENT
  Sex: Female

DRUGS (1)
  1. SEROPHENE [Suspect]
     Dosage: 50 MG

REACTIONS (1)
  - MENSTRUAL DISORDER [None]
